FAERS Safety Report 8804163 (Version 1)
Quarter: 2012Q4

REPORT INFORMATION
  Report Type: 
  Country: US (occurrence: US)
  Receive Date: 20120924
  Receipt Date: 20120924
  Transmission Date: 20130627
  Serious: Yes (Other)
  Sender: FDA-Public Use
  Company Number: US-JNJFOC-20120906579

PATIENT
  Age: 25 Year
  Sex: Female

DRUGS (14)
  1. ZYRTEC [Suspect]
     Route: 065
  2. ZYRTEC [Suspect]
     Indication: PRODUCT USED FOR UNKNOWN INDICATION
     Route: 065
  3. ALDACTONE [Concomitant]
     Route: 048
  4. REVATIO [Concomitant]
     Route: 048
  5. ATROVENT [Concomitant]
     Route: 065
  6. NEURONTIN [Concomitant]
     Route: 048
  7. LASIX [Concomitant]
     Route: 048
  8. NEXIUM [Concomitant]
     Route: 048
  9. CYMBALTA [Concomitant]
     Route: 048
  10. SINEQUAN [Concomitant]
     Route: 048
  11. LANOXIN [Concomitant]
     Route: 048
  12. AMBIEN [Concomitant]
     Route: 048
  13. SOMA [Concomitant]
     Route: 048
  14. LORTAB [Concomitant]
     Route: 048

REACTIONS (2)
  - Respiratory distress [Unknown]
  - Drug hypersensitivity [Unknown]
